FAERS Safety Report 4546376-6 (Version None)
Quarter: 2005Q1

REPORT INFORMATION
  Report Type: 
  Country: None (occurrence: None)
  Receive Date: 20050103
  Receipt Date: 20041222
  Transmission Date: 20050727
  Serious: Yes (Life-Threatening, Hospitalization, Other)
  Sender: FDA-Public Use
  Company Number: 2004014924

PATIENT
  Age: 46 Year
  Sex: Female
  Weight: 45.2 kg

DRUGS (3)
  1. AZITHROMYCIN [Suspect]
     Indication: GASTROENTERITIS
     Dosage: 500 MG (2 IN 1 D), ORAL
     Route: 048
     Dates: start: 20030503, end: 20030504
  2. IBUPROFEN [Concomitant]
  3. CAPTOPRIL [Concomitant]

REACTIONS (14)
  - ABDOMINAL PAIN UPPER [None]
  - AGRANULOCYTOSIS [None]
  - C-REACTIVE PROTEIN INCREASED [None]
  - HEPATIC ATROPHY [None]
  - HEPATIC CYST [None]
  - HEPATITIS [None]
  - HEPATOMEGALY [None]
  - INFLAMMATION [None]
  - JAUNDICE [None]
  - PANCYTOPENIA [None]
  - PORTAL HYPERTENSION [None]
  - PYREXIA [None]
  - SPLENOMEGALY [None]
  - THERAPY NON-RESPONDER [None]
